FAERS Safety Report 12555812 (Version 1)
Quarter: 2016Q3

REPORT INFORMATION
  Report Type: Report from Study
  Country: AR (occurrence: AR)
  Receive Date: 20160714
  Receipt Date: 20160714
  Transmission Date: 20161109
  Serious: Yes (Hospitalization)
  Sender: FDA-Public Use
  Company Number: PHHY2016AR094649

PATIENT
  Age: 64 Year
  Sex: Female

DRUGS (2)
  1. ONBREZ BREEZHALER [Suspect]
     Active Substance: INDACATEROL
     Indication: CHRONIC OBSTRUCTIVE PULMONARY DISEASE
     Dosage: 150 OT, QN
     Route: 065
     Dates: start: 201603
  2. ONBREZ BREEZHALER [Suspect]
     Active Substance: INDACATEROL
     Indication: DYSPNOEA
     Dosage: 150 OT, QN
     Route: 065
     Dates: start: 2015

REACTIONS (3)
  - Malaise [Recovered/Resolved]
  - Cerebrovascular accident [Recovered/Resolved]
  - Pneumonia [Recovered/Resolved]

NARRATIVE: CASE EVENT DATE: 20160502
